FAERS Safety Report 18348628 (Version 1)
Quarter: 2020Q4

REPORT INFORMATION
  Report Type: Spontaneous
  Country: US (occurrence: US)
  Receive Date: 20201006
  Receipt Date: 20201006
  Transmission Date: 20210114
  Serious: Yes (Other)
  Sender: FDA-Public Use
  Company Number: US-PFIZER INC-2020370420

PATIENT
  Age: 36 Year
  Sex: Female

DRUGS (1)
  1. MEPERIDINE HCL [Suspect]
     Active Substance: MEPERIDINE HYDROCHLORIDE
     Indication: MIGRAINE
     Dosage: UNK (100 TO 300 MG DAILY, WAS SELF-INJECTED
     Route: 030
     Dates: start: 1977

REACTIONS (3)
  - Muscle fibrosis [Recovering/Resolving]
  - Drug abuser [Unknown]
  - Neuropathy peripheral [Recovering/Resolving]
